FAERS Safety Report 20292026 (Version 2)
Quarter: 2022Q1

REPORT INFORMATION
  Report Type: Spontaneous
  Country: GB (occurrence: GB)
  Receive Date: 20220104
  Receipt Date: 20220110
  Transmission Date: 20220424
  Serious: Yes (Other)
  Sender: FDA-Public Use
  Company Number: None

PATIENT
  Age: 32 Year
  Sex: Male

DRUGS (6)
  1. PFIZER-BIONTECH COVID-19 VACCINE [Suspect]
     Active Substance: TOZINAMERAN
     Dosage: DOSE 3B
     Dates: start: 20211112
  2. LANSOPRAZOLE [Suspect]
     Active Substance: LANSOPRAZOLE
  3. OMEPRAZOLE [Suspect]
     Active Substance: OMEPRAZOLE
  4. LANSOPRAZOLE [Concomitant]
     Active Substance: LANSOPRAZOLE
     Indication: Gastrooesophageal reflux disease
  5. SAXENDA [Concomitant]
     Active Substance: LIRAGLUTIDE
     Indication: Overweight
  6. FOLIC ACID [Suspect]
     Active Substance: FOLIC ACID

REACTIONS (3)
  - Muscle spasms [Recovering/Resolving]
  - Abdominal pain [Not Recovered/Not Resolved]
  - Change of bowel habit [Not Recovered/Not Resolved]

NARRATIVE: CASE EVENT DATE: 20211115
